FAERS Safety Report 6159739-2 (Version None)
Quarter: 2009Q2

REPORT INFORMATION
  Report Type: 
  Country: None (occurrence: None)
  Receive Date: 20090420
  Receipt Date: 20090414
  Transmission Date: 20091009
  Serious: Yes (Congenital Anomaly, Other)
  Sender: FDA-Public Use
  Company Number: US-BIOGENIDEC-132172

PATIENT
  Sex: Male

DRUGS (1)
  1. AVONEX [Suspect]
     Indication: DRUG EXPOSURE DURING PREGNANCY
     Route: 064
     Dates: start: 19960101, end: 19980316

REACTIONS (5)
  - CAESAREAN SECTION [None]
  - CARDIAC MURMUR [None]
  - DEAFNESS [None]
  - FOETAL HEART RATE DECREASED [None]
  - MATERNAL DRUGS AFFECTING FOETUS [None]
